FAERS Safety Report 24943855 (Version 2)
Quarter: 2025Q1

REPORT INFORMATION
  Report Type: Spontaneous
  Country: US (occurrence: US)
  Receive Date: 20250207
  Receipt Date: 20250313
  Transmission Date: 20250408
  Serious: No
  Sender: MYLAN
  Company Number: US-MYLANLABS-2025M1010067

PATIENT

DRUGS (1)
  1. LEVOTHYROXINE SODIUM [Suspect]
     Active Substance: LEVOTHYROXINE SODIUM
     Indication: Product used for unknown indication

REACTIONS (1)
  - Nausea [Recovered/Resolved]
